FAERS Safety Report 4906224-9 (Version None)
Quarter: 2006Q1

REPORT INFORMATION
  Report Type: 
  Country: None (occurrence: None)
  Receive Date: 20060131
  Receipt Date: 20060119
  Transmission Date: 20060701
  Serious: Yes (Disabling, Other)
  Sender: FDA-Public Use
  Company Number: 2005BH002235

PATIENT
  Age: 51 Year
  Sex: Male

DRUGS (5)
  1. GAMMAGARD S/D [Suspect]
     Indication: SELECTIVE IGA IMMUNODEFICIENCY
     Dosage: EVERY MO; IV
     Route: 042
     Dates: start: 19940301, end: 19960301
  2. POLYGAM SD [Suspect]
     Indication: SELECTIVE IGA IMMUNODEFICIENCY
     Dates: start: 19940301
  3. ZLB IVIG LYO [Suspect]
     Dates: start: 19940301
  4. GAMMAR-P IV [Suspect]
     Indication: SELECTIVE IGA IMMUNODEFICIENCY
     Dosage: 25 GM; EVERY DAY; IV
     Route: 042
     Dates: start: 19940301
  5. VENOGLOBIN [Suspect]
     Indication: SELECTIVE IGA IMMUNODEFICIENCY
     Dates: start: 19940301

REACTIONS (1)
  - HEPATITIS C [None]
